FAERS Safety Report 8814405 (Version 2)
Quarter: 2012Q4

REPORT INFORMATION
  Report Type: Spontaneous
  Country: US (occurrence: None)
  Receive Date: 20120926
  Receipt Date: 20121001
  Transmission Date: 20130627
  Serious: Yes (Death)
  Sender: FDA-Public Use
  Company Number: SP05732

PATIENT
  Age: 79 Year
  Sex: Male
  Weight: 54.43 kg

DRUGS (9)
  1. RELISTOR [Suspect]
     Indication: OPIOID INDUCED CONSTIPATION
     Dosage: 0.4 ml (0.4 ml, 1 in 1 D), Subcutaneous
     Route: 058
     Dates: start: 20120430, end: 20120502
  2. RELISTOR [Suspect]
     Indication: OPIOID INDUCED CONSTIPATION
     Dosage: (0.6 ml, every other day), Subcutaneous
     Route: 058
     Dates: start: 200205
  3. MORPHINE (EXTENDED-RELEASE CAPSULES) [Concomitant]
  4. PREDNISONE [Concomitant]
  5. CALCIUM WITH VITAMIN D [Concomitant]
  6. VITAMIN D [Concomitant]
  7. CALCITROL [Concomitant]
  8. DOCUSATE [Concomitant]
  9. OMEPRAZOLE [Concomitant]

REACTIONS (3)
  - Drug ineffective [None]
  - Faeces discoloured [None]
  - Flatulence [None]
